FAERS Safety Report 6128648-7 (Version None)
Quarter: 2009Q1

REPORT INFORMATION
  Report Type: 
  Country: None (occurrence: None)
  Receive Date: 20090323
  Receipt Date: 20090311
  Transmission Date: 20090719
  Serious: Yes (Hospitalization, Other)
  Sender: FDA-Public Use
  Company Number: BR-PFIZER INC-2009183002

PATIENT

DRUGS (1)
  1. SUTENT [Suspect]
     Indication: RENAL CANCER
     Dosage: 50 MG, 1X/DAY
     Route: 048
     Dates: start: 20080505, end: 20090106

REACTIONS (4)
  - ANAEMIA [None]
  - CARDIAC FAILURE [None]
  - CARDIOMEGALY [None]
  - LEUKOPENIA [None]
